FAERS Safety Report 25441827 (Version 2)
Quarter: 2025Q3

REPORT INFORMATION
  Report Type: Spontaneous
  Country: EU (occurrence: EU)
  Receive Date: 20250616
  Receipt Date: 20250731
  Transmission Date: 20251021
  Serious: Yes (Other)
  Sender: NOVARTIS
  Company Number: EU-002147023-NVSC2025AT092962

PATIENT
  Sex: Female

DRUGS (2)
  1. LETROZOLE [Suspect]
     Active Substance: LETROZOLE
     Indication: Hormone therapy
     Route: 065
  2. LETROZOLE [Suspect]
     Active Substance: LETROZOLE
     Indication: Ovarian cancer

REACTIONS (4)
  - Ovarian cancer recurrent [Unknown]
  - Ovarian cancer [Unknown]
  - Malignant neoplasm progression [Unknown]
  - Off label use [Unknown]
